FAERS Safety Report 6349571-9 (Version None)
Quarter: 2009Q3

REPORT INFORMATION
  Report Type: 
  Country: None (occurrence: None)
  Receive Date: 20090911
  Receipt Date: 20090831
  Transmission Date: 20100115
  Serious: Yes (Other)
  Sender: FDA-Public Use
  Company Number: FR-ELI_LILLY_AND_COMPANY-FR200907003325

PATIENT
  Age: 29 Year
  Sex: Female
  Weight: 60 kg

DRUGS (3)
  1. CYMBALTA [Suspect]
     Indication: DEPRESSION
     Dosage: 60 MG, DAILY (1/D)
     Route: 048
     Dates: start: 20090530, end: 20090531
  2. LEXOMIL [Concomitant]
     Indication: ANXIETY
     Dosage: 6 MG, UNKNOWN
     Route: 048
     Dates: start: 20090530
  3. IMOVANE [Concomitant]
     Indication: HYPNOTHERAPY
     Dosage: 7.5 MG, UNKNOWN
     Route: 048
     Dates: start: 20090530

REACTIONS (1)
  - ANGIOEDEMA [None]
